FAERS Safety Report 4753248-0 (Version None)
Quarter: 2005Q3

REPORT INFORMATION
  Report Type: 
  Country: None (occurrence: None)
  Receive Date: 20050824
  Receipt Date: 20050814
  Transmission Date: 20060218
  Serious: Yes (Other)
  Sender: FDA-Public Use
  Company Number: 200513291BCC

PATIENT
  Age: 51 Year
  Sex: Male
  Weight: 81.6475 kg

DRUGS (5)
  1. ASPIRIN [Suspect]
     Indication: CARDIAC DISORDER
     Dosage: 325 MG, QD, ORAL
     Route: 048
     Dates: start: 19800101
  2. ASPIRIN [Suspect]
     Indication: PROPHYLAXIS
     Dosage: 325 MG, QD, ORAL
     Route: 048
     Dates: start: 19800101
  3. ZOCOR [Concomitant]
  4. PLAVIX [Concomitant]
  5. ATENOLOL [Concomitant]

REACTIONS (1)
  - MYOCARDIAL INFARCTION [None]
